FAERS Safety Report 9993320 (Version 5)
Quarter: 2014Q2

REPORT INFORMATION
  Report Type: Report from Study
  Country: US (occurrence: US)
  Receive Date: 20140310
  Receipt Date: 20140421
  Transmission Date: 20141212
  Serious: No
  Sender: FDA-Public Use
  Company Number: US-ACTELION-A-US2014-95498

PATIENT
  Age: 66 Year
  Sex: Female

DRUGS (4)
  1. MACITENTAN [Suspect]
     Indication: PULMONARY ARTERIAL HYPERTENSION
     Dosage: 10 MG, QD
     Route: 048
     Dates: start: 20140212
  2. MACITENTAN [Suspect]
     Dosage: 10 MG, QD
     Route: 048
     Dates: end: 20140113
  3. REVATIO [Concomitant]
  4. TYVASO [Concomitant]
     Dosage: UNK

REACTIONS (1)
  - Treatment noncompliance [Unknown]
